FAERS Safety Report 4766303-6 (Version None)
Quarter: 2005Q3

REPORT INFORMATION
  Report Type: 
  Country: None (occurrence: None)
  Receive Date: 20050906
  Receipt Date: 20050823
  Transmission Date: 20060218
  Serious: Yes (Other)
  Sender: FDA-Public Use
  Company Number: USA0508106259

PATIENT
  Age: 55 Year
  Sex: Male

DRUGS (1)
  1. HUMALOG MIX 75/25 [Suspect]
     Indication: DIABETES MELLITUS
     Dates: start: 19990101

REACTIONS (3)
  - BLOOD GLUCOSE INCREASED [None]
  - HEART TRANSPLANT [None]
  - PHARMACEUTICAL PRODUCT COMPLAINT [None]
